FAERS Safety Report 10838636 (Version 1)
Quarter: 2015Q1

REPORT INFORMATION
  Report Type: Spontaneous
  Country: US (occurrence: US)
  Receive Date: 20150219
  Receipt Date: 20150219
  Transmission Date: 20150721
  Serious: No
  Sender: FDA-Public Use
  Company Number: US-ABBVIE-14P-163-1227698-00

PATIENT
  Sex: Female

DRUGS (1)
  1. HUMIRA [Suspect]
     Active Substance: ADALIMUMAB
     Indication: PSORIATIC ARTHROPATHY
     Dates: end: 2013

REACTIONS (3)
  - Cholestasis [Recovered/Resolved]
  - Arthralgia [Recovered/Resolved]
  - Iritis [Recovered/Resolved]

NARRATIVE: CASE EVENT DATE: 2013
